FAERS Safety Report 8603681 (Version 3)
Quarter: 2012Q4

REPORT INFORMATION
  Report Type: Report from Study
  Country: DE (occurrence: DE)
  Receive Date: 20120607
  Receipt Date: 20121129
  Transmission Date: 20130627
  Serious: Yes (Hospitalization)
  Sender: FDA-Public Use
  Company Number: DE-JNJFOC-20120520705

PATIENT
  Age: 41 Year
  Sex: Male
  Weight: 80 kg

DRUGS (4)
  1. SIMPONI [Suspect]
     Indication: ANKYLOSING SPONDYLITIS
     Route: 058
     Dates: start: 20110920
  2. PREDNISOLONE [Concomitant]
     Dates: start: 20111006
  3. PREDNISOLONE [Concomitant]
     Dates: start: 201103
  4. PREDNISOLONE [Concomitant]
     Dates: start: 20120410

REACTIONS (1)
  - Cerebellar infarction [Recovered/Resolved]
